FAERS Safety Report 12227877 (Version 2)
Quarter: 2016Q2

REPORT INFORMATION
  Report Type: Spontaneous
  Country: US (occurrence: US)
  Receive Date: 20160401
  Receipt Date: 20160413
  Transmission Date: 20160815
  Serious: Yes (Hospitalization)
  Sender: FDA-Public Use
  Company Number: US-BEH-2016060563

PATIENT
  Age: 54 Year
  Sex: Female
  Weight: 86 kg

DRUGS (33)
  1. FISH OIL [Concomitant]
     Active Substance: FISH OIL
  2. DURAGESIC [Concomitant]
     Active Substance: FENTANYL
  3. ZEMAIRA [Suspect]
     Active Substance: .ALPHA.1-PROTEINASE INHIBITOR HUMAN
     Indication: EMPHYSEMA
     Route: 042
  4. PREDNISONE. [Concomitant]
     Active Substance: PREDNISONE
  5. OMEPRAZOLE. [Concomitant]
     Active Substance: OMEPRAZOLE
  6. CEFUROXIME. [Concomitant]
     Active Substance: CEFUROXIME
  7. MAGNESIUM OXIDE. [Concomitant]
     Active Substance: MAGNESIUM OXIDE
  8. LANSOPRAZOLE DR [Concomitant]
  9. MEPRON [Concomitant]
     Active Substance: ATOVAQUONE
  10. DICYCLOMINE [Concomitant]
     Active Substance: DICYCLOMINE HYDROCHLORIDE
  11. VITAMIN D3 [Concomitant]
     Active Substance: CHOLECALCIFEROL
  12. LIDOCAINE. [Concomitant]
     Active Substance: LIDOCAINE
  13. NYSTATIN. [Concomitant]
     Active Substance: NYSTATIN
  14. TACROLIMUS. [Concomitant]
     Active Substance: TACROLIMUS
  15. OXYBUTYNIN CHLORIDE ER [Concomitant]
     Active Substance: OXYBUTYNIN CHLORIDE
  16. DIPHENHYDRAMINE. [Concomitant]
     Active Substance: DIPHENHYDRAMINE
  17. SODIUM CHLORIDE. [Concomitant]
     Active Substance: SODIUM CHLORIDE
  18. ZOLOFT [Concomitant]
     Active Substance: SERTRALINE HYDROCHLORIDE
  19. ZEMAIRA [Suspect]
     Active Substance: .ALPHA.1-PROTEINASE INHIBITOR HUMAN
     Indication: EMPHYSEMA
     Route: 042
  20. EPIPEN [Concomitant]
     Active Substance: EPINEPHRINE
  21. CYMBALTA [Concomitant]
     Active Substance: DULOXETINE HYDROCHLORIDE
  22. VISTARIL [Concomitant]
     Active Substance: HYDROXYZINE PAMOATE
  23. CELLCEPT [Concomitant]
     Active Substance: MYCOPHENOLATE MOFETIL\MYCOPHENOLATE MOFETIL HYDROCHLORIDE
  24. MYCOPHENOLATE [Concomitant]
     Active Substance: MYCOPHENOLIC ACID
  25. TOPAMAX [Concomitant]
     Active Substance: TOPIRAMATE
  26. CLONAZEPAM. [Concomitant]
     Active Substance: CLONAZEPAM
  27. AMLODIPINE [Concomitant]
     Active Substance: AMLODIPINE BESYLATE
  28. DOCUSATE SODIUM. [Concomitant]
     Active Substance: DOCUSATE SODIUM
  29. DOXYCYCLINE. [Concomitant]
     Active Substance: DOXYCYCLINE
  30. AZITHROMYCIN ANHYDROUS. [Concomitant]
     Active Substance: AZITHROMYCIN ANHYDROUS
  31. SYNTHROID [Concomitant]
     Active Substance: LEVOTHYROXINE SODIUM
  32. LOSARTAN. [Concomitant]
     Active Substance: LOSARTAN
  33. VALACYCLOVIR [Concomitant]
     Active Substance: VALACYCLOVIR HYDROCHLORIDE

REACTIONS (2)
  - Lung transplant [Unknown]
  - Hospitalisation [Recovered/Resolved]

NARRATIVE: CASE EVENT DATE: 20111219
